FAERS Safety Report 7703492-5 (Version None)
Quarter: 2011Q3

REPORT INFORMATION
  Report Type: 
  Country: None (occurrence: None)
  Receive Date: 20110817
  Receipt Date: 20110810
  Transmission Date: 20111222
  Serious: Yes (Life-Threatening, Hospitalization)
  Sender: FDA-Public Use
  Company Number: 2011SP037491

PATIENT
  Age: 44 Year
  Sex: Female

DRUGS (10)
  1. FLUTICASONE PROPIONATE [Concomitant]
  2. KETAMINE HCL [Suspect]
     Indication: PRODUCT USED FOR UNKNOWN INDICATION
     Dosage: IV
     Route: 042
     Dates: start: 20110608, end: 20110608
  3. NORCURON [Suspect]
     Indication: PRODUCT USED FOR UNKNOWN INDICATION
     Dosage: ONCE, IV
     Route: 042
     Dates: start: 20110608, end: 20110608
  4. CEFAMANDOLE NAFATE [Suspect]
     Indication: PRODUCT USED FOR UNKNOWN INDICATION
     Dosage: IV
     Route: 042
     Dates: start: 20110608, end: 20110608
  5. SPIRIVA [Concomitant]
  6. EPHEDRINE [Concomitant]
  7. SINGULAIR [Concomitant]
  8. ULTIVA [Suspect]
     Indication: PRODUCT USED FOR UNKNOWN INDICATION
     Dosage: IV
     Route: 042
     Dates: start: 20110608, end: 20110608
  9. PROPOFOL [Suspect]
     Indication: PRODUCT USED FOR UNKNOWN INDICATION
     Dosage: 250 MG, ONCE, IV
     Route: 042
     Dates: start: 20110608, end: 20110608
  10. VENTOLIN [Concomitant]

REACTIONS (1)
  - CIRCULATORY COLLAPSE [None]
